FAERS Safety Report 5291081-4 (Version None)
Quarter: 2007Q2

REPORT INFORMATION
  Report Type: 
  Country: None (occurrence: None)
  Receive Date: 20070402
  Receipt Date: 20070320
  Transmission Date: 20071010
  Serious: Yes (Other)
  Sender: FDA-Public Use
  Company Number: 238588

PATIENT
  Age: 45 Year
  Sex: Female

DRUGS (16)
  1. XOLAIR [Suspect]
     Indication: ASTHMA
     Dosage: SEE IMAGE
     Route: 058
     Dates: start: 20070112, end: 20070112
  2. XOLAIR [Suspect]
     Indication: ASTHMA
     Dosage: SEE IMAGE
     Route: 058
     Dates: start: 20070209
  3. MEDROL [Concomitant]
  4. THEOPHYLLINE [Concomitant]
  5. SERETIDE (FLUTICASONE PROPIONATE, SALMETEROL XINAFOATE) [Concomitant]
  6. FLUTICASONE PROPIONATE [Concomitant]
  7. CETIRIZINE HCL [Concomitant]
  8. THEOPHYLLINE [Concomitant]
  9. DUOVENT (FENOTEROL, IPRATROPIUM BROMIDE) [Concomitant]
  10. CACIT D3 (CALCIUM CARBONATE, CHOLECALCIFEROL) [Concomitant]
  11. ESCITALOPRAM (ESCITALOPRAM OXALATE) [Concomitant]
  12. ZOLPIDEM TARTRATE [Concomitant]
  13. CILEST (ETHINYL ESTRADIOL, NORGESTIMATE) [Concomitant]
  14. AKTON (CLOXAZOLAM) [Concomitant]
  15. OMEPRAZOLE [Concomitant]
  16. IMITREX [Concomitant]

REACTIONS (5)
  - NEUTROPHIL PERCENTAGE INCREASED [None]
  - RED BLOOD CELL MORPHOLOGY ABNORMAL [None]
  - SWELLING [None]
  - SWELLING FACE [None]
  - WHITE BLOOD CELL COUNT INCREASED [None]
